FAERS Safety Report 9013631 (Version 1)
Quarter: 2013Q1

REPORT INFORMATION
  Report Type: Report from Study
  Country: CZ (occurrence: CZ)
  Receive Date: 20130115
  Receipt Date: 20130115
  Transmission Date: 20140127
  Serious: Yes (Life-Threatening, Hospitalization, Other)
  Sender: FDA-Public Use
  Company Number: PHHY2013CZ001589

PATIENT
  Age: 46 Year
  Sex: Female

DRUGS (3)
  1. EVEROLIMUS [Suspect]
     Indication: RENAL CELL CARCINOMA
     Dosage: 10 MG, QD
     Dates: start: 20101215, end: 20111130
  2. EVEROLIMUS [Suspect]
     Dosage: 5 MG, QD
     Dates: start: 20120612, end: 20120710
  3. EVEROLIMUS [Suspect]
     Dosage: 5 MG, QD
     Dates: start: 20121218

REACTIONS (9)
  - Renal failure [Unknown]
  - Renal impairment [Unknown]
  - Pyelonephritis [Recovering/Resolving]
  - Renal abscess [Unknown]
  - Septic shock [Recovering/Resolving]
  - General physical health deterioration [Unknown]
  - Multi-organ failure [Unknown]
  - Neutrophil count decreased [Unknown]
  - Lymphocyte count decreased [Unknown]
